FAERS Safety Report 6372531-9 (Version None)
Quarter: 2009Q3

REPORT INFORMATION
  Report Type: 
  Country: None (occurrence: None)
  Receive Date: 20090924
  Receipt Date: 20090129
  Transmission Date: 20100115
  Serious: No
  Sender: FDA-Public Use
  Company Number: US-ASTRAZENECA-2008UW19485

PATIENT
  Age: 49 Year
  Sex: Male
  Weight: 71.2 kg

DRUGS (2)
  1. SEROQUEL [Suspect]
     Indication: SLEEP DISORDER
     Dosage: 25 MG
     Route: 048
  2. ALPRAZOLAM [Concomitant]

REACTIONS (2)
  - MEDICATION ERROR [None]
  - WEIGHT DECREASED [None]
